FAERS Safety Report 14288387 (Version 1)
Quarter: 2017Q4

REPORT INFORMATION
  Report Type: Spontaneous
  Country: US (occurrence: US)
  Receive Date: 20171214
  Receipt Date: 20171214
  Transmission Date: 20180321
  Serious: Yes (Hospitalization)
  Sender: FDA-Public Use
  Company Number: US-TAKEDA-2017TUS025536

PATIENT
  Sex: Female

DRUGS (1)
  1. ENTYVIO [Suspect]
     Active Substance: VEDOLIZUMAB
     Indication: CROHN^S DISEASE
     Dosage: UNK
     Route: 065
     Dates: start: 201411

REACTIONS (5)
  - Dehydration [Recovered/Resolved]
  - Crohn^s disease [Unknown]
  - Infection [Recovering/Resolving]
  - Influenza [Unknown]
  - Hepatitis [Recovered/Resolved]
